FAERS Safety Report 25347324 (Version 1)
Quarter: 2025Q2

REPORT INFORMATION
  Report Type: Spontaneous
  Country: GB (occurrence: GB)
  Receive Date: 20250522
  Receipt Date: 20250522
  Transmission Date: 20250716
  Serious: Yes (Hospitalization, Disabling, Other)
  Sender: ELI LILLY AND COMPANY
  Company Number: None

PATIENT
  Age: 35 Year
  Sex: Female

DRUGS (1)
  1. MOUNJARO [Suspect]
     Active Substance: TIRZEPATIDE
     Indication: Weight control
     Dosage: 2.5 MG, WEEKLY (1/W)
     Route: 065
     Dates: start: 20250103, end: 20250111

REACTIONS (10)
  - Depression [Recovering/Resolving]
  - Derealisation [Recovering/Resolving]
  - Anxiety [Not Recovered/Not Resolved]
  - Benign fasciculation syndrome [Not Recovered/Not Resolved]
  - Ageusia [Recovered/Resolved]
  - Vision blurred [Recovered/Resolved]
  - Suicidal ideation [Recovering/Resolving]
  - Panic attack [Recovered/Resolved]
  - Depersonalisation/derealisation disorder [Recovered/Resolved]
  - Tachycardia [Recovering/Resolving]

NARRATIVE: CASE EVENT DATE: 20250120
